FAERS Safety Report 4312182-0 (Version None)
Quarter: 2004Q1

REPORT INFORMATION
  Report Type: 
  Country: None (occurrence: None)
  Receive Date: 20040303
  Receipt Date: 20040224
  Transmission Date: 20041129
  Serious: Yes (Other)
  Sender: FDA-Public Use
  Company Number: 2004196958US

PATIENT
  Sex: Male

DRUGS (2)
  1. BEXTRA [Suspect]
     Indication: ARTHRALGIA
     Dosage: 20 MG, QD, ORAL
     Route: 048
     Dates: start: 20030916, end: 20030924
  2. VIAGRA [Concomitant]

REACTIONS (6)
  - EYE SWELLING [None]
  - HYPERSENSITIVITY [None]
  - ORAL PAIN [None]
  - PRURITUS [None]
  - RASH MACULO-PAPULAR [None]
  - SWELLING [None]
